FAERS Safety Report 5907719-1 (Version None)
Quarter: 2008Q4

REPORT INFORMATION
  Report Type: 
  Country: None (occurrence: None)
  Receive Date: 20081003
  Receipt Date: 19940615
  Transmission Date: 20090506
  Serious: Yes (Death)
  Sender: FDA-Public Use
  Company Number: DE-ROCHE-94030016-TOR001A

PATIENT
  Sex: Female
  Weight: 72 kg

DRUGS (6)
  1. TORSEMIDE [Suspect]
     Route: 042
     Dates: end: 19931220
  2. DOPAMINE HCL [Concomitant]
     Indication: HYPERTENSION
     Dates: start: 19931110
  3. DOBUTREX [Concomitant]
     Indication: HYPERTENSION
     Dates: start: 19931110
  4. CIPRO [Concomitant]
     Indication: PNEUMONIA
     Dates: start: 19931110
  5. LIQUAEMIN INJ [Concomitant]
     Indication: EMBOLISM
     Dates: start: 19931110
  6. HUMAN INSULIN [Concomitant]
     Indication: DIABETES MELLITUS
     Dosage: DRUG REPORTED AS: ACTRAPHANE
     Dates: start: 19931110

REACTIONS (1)
  - DEATH [None]
